FAERS Safety Report 6454452-6 (Version None)
Quarter: 2009Q4

REPORT INFORMATION
  Report Type: 
  Country: None (occurrence: None)
  Receive Date: 20091118
  Receipt Date: 20091112
  Transmission Date: 20100525
  Serious: Yes (Hospitalization)
  Sender: FDA-Public Use
  Company Number: 2009SP036133

PATIENT
  Age: 74 Year
  Sex: Female
  Weight: 54.8 kg

DRUGS (2)
  1. TEMOZOLOMIDE [Suspect]
     Indication: ACUTE MYELOID LEUKAEMIA
     Dosage: 100 MG/M2; QD; PO, 200 MG/M2; QD; PO
     Route: 048
     Dates: start: 20091002, end: 20091015
  2. TEMOZOLOMIDE [Suspect]
     Indication: ACUTE MYELOID LEUKAEMIA
     Dosage: 100 MG/M2; QD; PO, 200 MG/M2; QD; PO
     Route: 048
     Dates: start: 20091016, end: 20091022

REACTIONS (4)
  - BLOOD PRESSURE DECREASED [None]
  - FACIAL PAIN [None]
  - INFECTION [None]
  - NASOPHARYNGITIS [None]
